FAERS Safety Report 4357943-7 (Version None)
Quarter: 2004Q2

REPORT INFORMATION
  Report Type: 
  Country: None (occurrence: None)
  Receive Date: 20040510
  Receipt Date: 20040429
  Transmission Date: 20050107
  Serious: Yes (Death, Life-Threatening, Hospitalization)
  Sender: FDA-Public Use
  Company Number: STA-AE-04-MTX-161

PATIENT
  Sex: Male

DRUGS (6)
  1. METHOTREXATE [Suspect]
     Dosage: 10 MG
     Dates: start: 20020301
  2. ETANERCEPT (ETANERCEPT, INJECTION) [Suspect]
     Indication: WEGENER'S GRANULOMATOSIS
     Dosage: 25 MG 2X PER 1 WK, SC
     Route: 058
     Dates: end: 20011101
  3. CORTICOSTEROID NOS (CORTICOSTEROID) [Suspect]
  4. NEUPOGEN [Suspect]
  5. PREDNISONE [Concomitant]
  6. CYCLOPHOSPHAMIDE [Concomitant]

REACTIONS (12)
  - ABDOMINAL PAIN [None]
  - BACK PAIN [None]
  - CHEST PAIN [None]
  - ECCHYMOSIS [None]
  - FEBRILE NEUTROPENIA [None]
  - INFECTED SKIN ULCER [None]
  - LOBAR PNEUMONIA [None]
  - OEDEMA PERIPHERAL [None]
  - PANCYTOPENIA [None]
  - RESPIRATORY FAILURE [None]
  - SKIN LACERATION [None]
  - STAPHYLOCOCCAL BACTERAEMIA [None]
